FAERS Safety Report 11415056 (Version 1)
Quarter: 2015Q3

REPORT INFORMATION
  Report Type: Spontaneous
  Country: US (occurrence: None)
  Receive Date: 20150824
  Receipt Date: 20150824
  Transmission Date: 20151125
  Serious: Yes (Disabling, Other)
  Sender: FDA-Public Use
  Company Number: None

PATIENT
  Age: 69 Year
  Sex: Female
  Weight: 56.7 kg

DRUGS (22)
  1. COQ10 [Concomitant]
     Active Substance: UBIDECARENONE
  2. AMISH LEG CRAMP LIQUID RUB [Concomitant]
  3. PRAMIPEXOLE. [Suspect]
     Active Substance: PRAMIPEXOLE
     Indication: RESTLESS LEGS SYNDROME
     Dosage: 1 OR 2 AS NEEDED  2 OR 3 HRS. BEFORE BEDTIME
     Route: 048
     Dates: start: 20141231, end: 20150428
  4. BIOTIN [Concomitant]
     Active Substance: BIOTIN
  5. LEUTIN [Concomitant]
  6. ALEVE [Concomitant]
     Active Substance: NAPROXEN SODIUM
  7. FLONASE [Concomitant]
     Active Substance: FLUTICASONE PROPIONATE
  8. CALCIUM CITRATE [Concomitant]
     Active Substance: CALCIUM CITRATE
  9. VITAMIN E [Concomitant]
     Active Substance: .ALPHA.-TOCOPHEROL
  10. TURMERIC [Concomitant]
     Active Substance: TURMERIC
  11. VICODIN [Concomitant]
     Active Substance: ACETAMINOPHEN\HYDROCODONE BITARTRATE
  12. TYLENOL [Concomitant]
     Active Substance: ACETAMINOPHEN
  13. ASPIRIN. [Concomitant]
     Active Substance: ASPIRIN
  14. FISH OIL [Concomitant]
     Active Substance: FISH OIL
  15. DRAMAMINE [Concomitant]
     Active Substance: DIMENHYDRINATE
  16. LIQUID MAGNESIUM CITRATE [Concomitant]
  17. MELATONIN [Concomitant]
     Active Substance: MELATONIN
  18. MAGNILIFE RESTLESS LEG SYNDROME OINTMENT [Concomitant]
  19. WOMEN^S MULTIVITAMIN/MINERAL 40+ BY GARDEN OF LIFE [Concomitant]
  20. DICYCLOMINE [Concomitant]
     Active Substance: DICYCLOMINE HYDROCHLORIDE
  21. PLAVIX [Concomitant]
     Active Substance: CLOPIDOGREL BISULFATE
  22. MAGNESIUM CITRATE. [Concomitant]
     Active Substance: MAGNESIUM CITRATE

REACTIONS (6)
  - Fall [None]
  - Loss of consciousness [None]
  - Musculoskeletal pain [None]
  - Haemorrhage [None]
  - Headache [None]
  - Pain [None]

NARRATIVE: CASE EVENT DATE: 20150401
